FAERS Safety Report 7682875-6 (Version None)
Quarter: 2011Q3

REPORT INFORMATION
  Report Type: 
  Country: None (occurrence: None)
  Receive Date: 20110815
  Receipt Date: 20110811
  Transmission Date: 20111222
  Serious: Yes (Hospitalization)
  Sender: FDA-Public Use
  Company Number: SE-ROCHE-794042

PATIENT
  Age: 59 Year
  Sex: Female

DRUGS (1)
  1. ACTEMRA [Suspect]
     Dosage: DOSE: 480 GM1.
     Route: 042
     Dates: start: 20110203, end: 20110214

REACTIONS (2)
  - VASCULAR OCCLUSION [None]
  - SEPSIS [None]
